FAERS Safety Report 6818506-4 (Version None)
Quarter: 2010Q3

REPORT INFORMATION
  Report Type: 
  Country: None (occurrence: None)
  Receive Date: 20100706
  Receipt Date: 20080812
  Transmission Date: 20110219
  Serious: No
  Sender: FDA-Public Use
  Company Number: US-PFIZER INC-2008059254

PATIENT
  Sex: Female
  Weight: 53.52 kg

DRUGS (5)
  1. AZITHROMYCIN [Suspect]
     Indication: LUNG DISORDER
     Dates: start: 20040501
  2. ZOLOFT [Concomitant]
  3. DETROL [Concomitant]
  4. VITACAL [Concomitant]
  5. MULTI-VITAMINS [Concomitant]

REACTIONS (2)
  - HYPOAESTHESIA [None]
  - PARAESTHESIA [None]
